FAERS Safety Report 17069324 (Version 1)
Quarter: 2019Q4

REPORT INFORMATION
  Report Type: Spontaneous
  Country: CH (occurrence: CH)
  Receive Date: 20191125
  Receipt Date: 20191125
  Transmission Date: 20200122
  Serious: Yes (Hospitalization, Other)
  Sender: FDA-Public Use
  Company Number: CH-BRISTOL-MYERS SQUIBB COMPANY-BMS-2019-109941

PATIENT
  Age: 58 Year
  Sex: Male

DRUGS (3)
  1. OPDIVO [Suspect]
     Active Substance: NIVOLUMAB
     Indication: OESOPHAGEAL ADENOCARCINOMA
     Dosage: 3 MICROGRAM/KILOGRAM
     Route: 042
     Dates: start: 20190916, end: 20191016
  2. PANTOZOL [Concomitant]
     Active Substance: PANTOPRAZOLE SODIUM
     Indication: PRODUCT USED FOR UNKNOWN INDICATION
     Dosage: UNK
     Route: 065
  3. FRAGMIN [Concomitant]
     Active Substance: DALTEPARIN SODIUM
     Indication: PRODUCT USED FOR UNKNOWN INDICATION
     Dosage: UNK
     Route: 065

REACTIONS (5)
  - Malignant neoplasm progression [Unknown]
  - Acute kidney injury [Recovering/Resolving]
  - Renal aplasia [Unknown]
  - Toxicity to various agents [Unknown]
  - Off label use [Unknown]

NARRATIVE: CASE EVENT DATE: 20191018
